FAERS Safety Report 5773978-1 (Version None)
Quarter: 2008Q2

REPORT INFORMATION
  Report Type: 
  Country: None (occurrence: None)
  Receive Date: 20080616
  Receipt Date: 20080605
  Transmission Date: 20081010
  Serious: Yes (Other)
  Sender: FDA-Public Use
  Company Number: US-BAYER-200713732BCC

PATIENT
  Age: 49 Year
  Sex: Female
  Weight: 82 kg

DRUGS (2)
  1. ALEVE [Suspect]
     Indication: BACK PAIN
     Dosage: TOTAL DAILY DOSE: 440 MG  UNIT DOSE: 220 MG
     Route: 048
     Dates: start: 20070517, end: 20070517
  2. PROPRANOLOL [Concomitant]
     Dosage: TOTAL DAILY DOSE: 160 MG  UNIT DOSE: 160 MG
     Route: 048
     Dates: start: 19800501

REACTIONS (8)
  - ANAPHYLACTIC REACTION [None]
  - DIZZINESS [None]
  - FEELING COLD [None]
  - FLUSHING [None]
  - NAUSEA [None]
  - PRURITUS [None]
  - RASH [None]
  - SWOLLEN TONGUE [None]
